FAERS Safety Report 10186274 (Version 6)
Quarter: 2015Q3

REPORT INFORMATION
  Report Type: Spontaneous
  Country: US (occurrence: US)
  Receive Date: 20140521
  Receipt Date: 20150821
  Transmission Date: 20151125
  Serious: Yes (Hospitalization, Disabling, Other)
  Sender: FDA-Public Use
  Company Number: US-MERCK-1405USA010523

PATIENT
  Sex: Male
  Weight: 81.63 kg

DRUGS (3)
  1. BYETTA [Suspect]
     Active Substance: EXENATIDE
     Indication: TYPE 2 DIABETES MELLITUS
     Dosage: 7 IU, BID
     Dates: start: 20070710
  2. JANUVIA [Suspect]
     Active Substance: SITAGLIPTIN PHOSPHATE
     Dosage: UNK
     Route: 048
     Dates: start: 20090311, end: 20090603
  3. VICTOZA [Suspect]
     Active Substance: LIRAGLUTIDE
     Indication: TYPE 2 DIABETES MELLITUS
     Dosage: 8 IU, BID
     Dates: start: 20070910

REACTIONS (46)
  - Proctitis [Unknown]
  - Neuropathy peripheral [Unknown]
  - Therapeutic embolisation [Unknown]
  - Therapeutic embolisation [Unknown]
  - Urinary retention [Unknown]
  - Painful defaecation [Unknown]
  - Abdominal pain upper [Unknown]
  - Retinal disorder [Unknown]
  - Migraine [Unknown]
  - Mucosal inflammation [Unknown]
  - Skin exfoliation [Unknown]
  - Nausea [Unknown]
  - Pancreatic carcinoma metastatic [Unknown]
  - Chronic sinusitis [Not Recovered/Not Resolved]
  - Drug ineffective [Unknown]
  - Hepatic cancer metastatic [Unknown]
  - Metastases to liver [Unknown]
  - Anorectal disorder [Unknown]
  - Chest pain [Unknown]
  - Phlebolith [Unknown]
  - Spinal osteoarthritis [Unknown]
  - Diabetes mellitus inadequate control [Unknown]
  - Abdominal mass [Unknown]
  - Myocardial ischaemia [Unknown]
  - Hiatus hernia [Unknown]
  - Hyperlipidaemia [Unknown]
  - Mental status changes [Unknown]
  - Gun shot wound [Unknown]
  - Radiotherapy [Unknown]
  - Metastatic neoplasm [Unknown]
  - Arteriosclerosis [Unknown]
  - Gastrooesophageal reflux disease [Unknown]
  - Depression [Unknown]
  - Chest pain [Unknown]
  - Pancreatitis [Unknown]
  - Diarrhoea [Unknown]
  - Hypertension [Unknown]
  - Lymphadenopathy [Unknown]
  - Cerebral small vessel ischaemic disease [Not Recovered/Not Resolved]
  - Cyst [Unknown]
  - Vomiting [Unknown]
  - Metastatic lymphoma [Unknown]
  - Blindness [Unknown]
  - Pancreatitis [Unknown]
  - Cardiomegaly [Unknown]
  - Hyperglycaemia [Unknown]

NARRATIVE: CASE EVENT DATE: 201205
